FAERS Safety Report 4705803-1 (Version None)
Quarter: 2005Q3

REPORT INFORMATION
  Report Type: 
  Country: None (occurrence: None)
  Receive Date: 20050701
  Receipt Date: 20050624
  Transmission Date: 20060218
  Serious: Yes (Hospitalization)
  Sender: FDA-Public Use
  Company Number: US-MERCK-0506USA03514

PATIENT
  Age: 49 Year
  Sex: Male

DRUGS (3)
  1. VIOXX [Suspect]
     Indication: ARTHRITIS
     Route: 048
     Dates: start: 19900101, end: 19910101
  2. PROZAC [Concomitant]
     Route: 065
  3. [THERAPY UNSPECIFIED] [Concomitant]
     Route: 065

REACTIONS (7)
  - DYSURIA [None]
  - GASTROINTESTINAL MOTILITY DISORDER [None]
  - HAEMORRHOIDS [None]
  - INTESTINAL OBSTRUCTION [None]
  - MYOCARDIAL INFARCTION [None]
  - POLYP [None]
  - ROAD TRAFFIC ACCIDENT [None]
